FAERS Safety Report 19608731 (Version 1)
Quarter: 2021Q3

REPORT INFORMATION
  Report Type: Spontaneous
  Country: CA (occurrence: CA)
  Receive Date: 20210726
  Receipt Date: 20210726
  Transmission Date: 20211014
  Serious: Yes (Hospitalization, Other)
  Sender: FDA-Public Use
  Company Number: CA-GLAXOSMITHKLINE-CA2021AMR155237

PATIENT
  Age: 5 Year
  Sex: Female

DRUGS (11)
  1. HYDROXYZINE [Suspect]
     Active Substance: HYDROXYZINE HYDROCHLORIDE
     Indication: PRURITUS
     Dosage: UNK
  2. VANCOMYCIN [Suspect]
     Active Substance: VANCOMYCIN
     Indication: VASCULAR DEVICE INFECTION
     Dosage: UNK, 9DAYS
     Route: 042
  3. MIRTAZAPINE. [Suspect]
     Active Substance: MIRTAZAPINE
     Indication: PRURITUS
     Dosage: 7.5 MG
  4. GABAPENTIN. [Suspect]
     Active Substance: GABAPENTIN
     Indication: PRURITUS
     Dosage: UNK
  5. MEPOLIZUMAB [Suspect]
     Active Substance: MEPOLIZUMAB
     Indication: EOSINOPHILIA
  6. DESLORATADINE. [Suspect]
     Active Substance: DESLORATADINE
     Indication: PRURITUS
     Dosage: 2.5 MG
  7. AMITRIPTYLINE [Suspect]
     Active Substance: AMITRIPTYLINE
     Indication: PRURITUS
     Dosage: UNK
  8. DIPHENHYDRAMINE. [Suspect]
     Active Substance: DIPHENHYDRAMINE
     Indication: PRURITUS
     Dosage: UNK
  9. MEPOLIZUMAB [Suspect]
     Active Substance: MEPOLIZUMAB
     Indication: PRURITUS
     Dosage: 50 MG, Z 12 MONTHS
     Route: 058
  10. CLONIDINE. [Suspect]
     Active Substance: CLONIDINE
     Indication: PRURITUS
     Dosage: UNK
  11. VANCOMYCIN [Suspect]
     Active Substance: VANCOMYCIN
     Indication: STAPHYLOCOCCAL BACTERAEMIA

REACTIONS (4)
  - Drug ineffective [Recovered/Resolved]
  - Pruritus [Recovered/Resolved]
  - Off label use [Recovered/Resolved]
  - Linear IgA disease [Recovered/Resolved]
